FAERS Safety Report 8339364-5 (Version None)
Quarter: 2012Q2

REPORT INFORMATION
  Report Type: 
  Country: None (occurrence: None)
  Receive Date: 20120507
  Receipt Date: 20120427
  Transmission Date: 20120825
  Serious: Yes (Other)
  Sender: FDA-Public Use
  Company Number: US-US-EMD SERONO, INC.-7129404

PATIENT
  Sex: Female

DRUGS (1)
  1. REBIF [Suspect]
     Indication: PRODUCT USED FOR UNKNOWN INDICATION
     Route: 058
     Dates: start: 20080207

REACTIONS (7)
  - FUNGAL INFECTION [None]
  - FATIGUE [None]
  - OPTIC NEURITIS [None]
  - ASTHENIA [None]
  - ILLUSION [None]
  - SINUSITIS [None]
  - INFECTION [None]
